FAERS Safety Report 10400052 (Version 1)
Quarter: 2014Q3

REPORT INFORMATION
  Report Type: Spontaneous
  Country: US (occurrence: US)
  Receive Date: 20140821
  Receipt Date: 20140821
  Transmission Date: 20150326
  Serious: Yes (Death, Hospitalization, Other)
  Sender: FDA-Public Use
  Company Number: US-009507513-1408USA011241

PATIENT
  Sex: Female
  Weight: 99.77 kg

DRUGS (1)
  1. NUVARING [Suspect]
     Active Substance: ETHINYL ESTRADIOL\ETONOGESTREL
     Indication: CONTRACEPTION
     Dosage: UNK
     Route: 067
     Dates: start: 201310, end: 20131127

REACTIONS (5)
  - Pulmonary embolism [Fatal]
  - Subarachnoid haemorrhage [Unknown]
  - Cardio-respiratory arrest [Fatal]
  - Bronchopneumonia [Unknown]
  - Convulsion [Unknown]

NARRATIVE: CASE EVENT DATE: 20131206
